FAERS Safety Report 11731355 (Version 7)
Quarter: 2016Q2

REPORT INFORMATION
  Report Type: Report from Study
  Country: CA (occurrence: CA)
  Receive Date: 20151112
  Receipt Date: 20160406
  Transmission Date: 20160815
  Serious: Yes (Hospitalization)
  Sender: FDA-Public Use
  Company Number: CA-GILEAD-2015-0179703

PATIENT
  Age: 70 Year
  Sex: Male

DRUGS (12)
  1. DILANTIN                           /00017402/ [Concomitant]
  2. CALCIUM [Concomitant]
     Active Substance: CALCIUM
  3. IDELALISIB [Suspect]
     Active Substance: IDELALISIB
     Dosage: 150 MG, BID
     Route: 048
     Dates: start: 20151109, end: 20160226
  4. IDELALISIB [Suspect]
     Active Substance: IDELALISIB
     Indication: CHRONIC LYMPHOCYTIC LEUKAEMIA
     Dosage: 150 MG, BID
     Route: 048
     Dates: start: 20151026, end: 20151106
  5. WARFARIN [Concomitant]
     Active Substance: WARFARIN
  6. APO RISEDRONATE [Concomitant]
  7. IDELALISIB [Suspect]
     Active Substance: IDELALISIB
     Dosage: 150 MG, BID
     Route: 048
     Dates: start: 20160307
  8. VITAMIN D [Concomitant]
     Active Substance: CHOLECALCIFEROL
  9. RITUXAN [Suspect]
     Active Substance: RITUXIMAB
     Indication: PRODUCT USED FOR UNKNOWN INDICATION
     Dosage: UNK
     Route: 042
     Dates: start: 20151026
  10. TYLENOL [Concomitant]
     Active Substance: ACETAMINOPHEN
  11. ATACAND [Concomitant]
     Active Substance: CANDESARTAN CILEXETIL
  12. MULTIVITAMINS [Concomitant]
     Active Substance: VITAMINS

REACTIONS (7)
  - Infusion related reaction [Recovered/Resolved]
  - Nasopharyngitis [Recovering/Resolving]
  - Malaise [Not Recovered/Not Resolved]
  - Vomiting [Unknown]
  - Dizziness [Not Recovered/Not Resolved]
  - Blood test abnormal [Not Recovered/Not Resolved]
  - Abdominal discomfort [Not Recovered/Not Resolved]

NARRATIVE: CASE EVENT DATE: 20151026
